FAERS Safety Report 6154366-5 (Version None)
Quarter: 2009Q2

REPORT INFORMATION
  Report Type: 
  Country: None (occurrence: None)
  Receive Date: 20090414
  Receipt Date: 20090323
  Transmission Date: 20091009
  Serious: Yes (Death, Other)
  Sender: FDA-Public Use
  Company Number: JP-BAYER-200812829BYL

PATIENT
  Age: 40 Year
  Sex: Male
  Weight: 82 kg

DRUGS (10)
  1. NEXAVAR [Suspect]
     Indication: RENAL CELL CARCINOMA STAGE IV
     Dosage: TOTAL DAILY DOSE: 800 MG  UNIT DOSE: 200 MG
     Route: 048
     Dates: start: 20081027, end: 20081119
  2. FIRSTCIN [Suspect]
     Indication: DRUG USE FOR UNKNOWN INDICATION
     Route: 042
     Dates: start: 20081113, end: 20081119
  3. MAGMITT [Concomitant]
     Dosage: 300-990MG/DAY
     Route: 048
     Dates: start: 20081027, end: 20081119
  4. TAGAMET [Concomitant]
     Route: 048
     Dates: start: 20081028, end: 20081112
  5. LOXONIN [Concomitant]
     Route: 048
     Dates: start: 20081105, end: 20081113
  6. NOVAMIN [Concomitant]
     Route: 048
     Dates: start: 20081111, end: 20081119
  7. DUROTEP [Concomitant]
     Route: 062
     Dates: start: 20081111, end: 20081119
  8. OXINORM [Concomitant]
     Route: 048
     Dates: start: 20081112, end: 20081119
  9. OMEPRAL [Concomitant]
     Route: 042
     Dates: start: 20081113, end: 20081117
  10. OMEPRAL [Concomitant]
     Route: 048
     Dates: start: 20081118, end: 20081119

REACTIONS (7)
  - ALOPECIA [None]
  - BLOOD ALKALINE PHOSPHATASE INCREASED [None]
  - BLOOD BILIRUBIN INCREASED [None]
  - GAMMA-GLUTAMYLTRANSFERASE INCREASED [None]
  - LEUCINE AMINOPEPTIDASE INCREASED [None]
  - PALMAR-PLANTAR ERYTHRODYSAESTHESIA SYNDROME [None]
  - RENAL CELL CARCINOMA [None]
